FAERS Safety Report 7088710-1 (Version None)
Quarter: 2010Q4

REPORT INFORMATION
  Report Type: 
  Country: None (occurrence: None)
  Receive Date: 20101108
  Receipt Date: 20101103
  Transmission Date: 20110411
  Serious: Yes (Hospitalization)
  Sender: FDA-Public Use
  Company Number: DE-ROCHE-732613

PATIENT
  Sex: Male
  Weight: 106 kg

DRUGS (18)
  1. TOCILIZUMAB [Suspect]
     Indication: RHEUMATOID ARTHRITIS
     Dosage: FIRST APPLICATION WAS GIVEN AT 480 MG, ALL THE FOLLOWING ONES AT 800 MG
     Route: 042
     Dates: start: 20091015, end: 20100215
  2. TOCILIZUMAB [Suspect]
     Route: 042
     Dates: start: 20100719
  3. PREDNISOLON [Concomitant]
     Indication: RHEUMATOID ARTHRITIS
     Route: 048
  4. METHOTREXAT [Concomitant]
     Indication: RHEUMATOID ARTHRITIS
     Dosage: S.C. GIVEN FROM JAN 2009, FOLLOWED BY ORAL AT 10 MG SINCE APR 2010
     Dates: start: 20090101, end: 20100610
  5. GLIMEPIRID [Concomitant]
  6. AMITRIPTYLINE HCL [Concomitant]
  7. ASPIRIN [Concomitant]
  8. BISOPROLOL [Concomitant]
  9. CALCIMAGON-D3 [Concomitant]
  10. DEKRISTOL [Concomitant]
  11. DELIX [Concomitant]
  12. FOLIC ACID [Concomitant]
  13. MACROGOL [Concomitant]
  14. PALLADONE [Concomitant]
  15. PANTOPRAZOLE SODIUM [Concomitant]
  16. QUENSYL [Concomitant]
  17. SIMVASTATIN [Concomitant]
  18. ZOPICLON [Concomitant]

REACTIONS (2)
  - IMPAIRED HEALING [None]
  - WOUND INFECTION [None]
